FAERS Safety Report 23192999 (Version 3)
Quarter: 2023Q4

REPORT INFORMATION
  Report Type: Spontaneous
  Country: US (occurrence: US)
  Receive Date: 20231116
  Receipt Date: 20231130
  Transmission Date: 20240109
  Serious: Yes (Other)
  Sender: FDA-Public Use
  Company Number: US-AstraZeneca-CH-00503829A

PATIENT
  Age: 43 Year
  Sex: Female

DRUGS (1)
  1. ULTOMIRIS [Suspect]
     Active Substance: RAVULIZUMAB-CWVZ
     Indication: Myasthenia gravis
     Dosage: UNK
     Route: 041
     Dates: start: 20230515

REACTIONS (6)
  - Pneumonia [Recovered/Resolved]
  - Spinal cord disorder [Unknown]
  - Pleural effusion [Recovered/Resolved]
  - Gait disturbance [Unknown]
  - Somnolence [Unknown]
  - Balance disorder [Unknown]

NARRATIVE: CASE EVENT DATE: 20231001
